FAERS Safety Report 24680605 (Version 9)
Quarter: 2025Q2

REPORT INFORMATION
  Report Type: Spontaneous
  Country: JP (occurrence: JP)
  Receive Date: 20241129
  Receipt Date: 20250430
  Transmission Date: 20250717
  Serious: Yes (Death, Hospitalization, Other)
  Sender: PFIZER
  Company Number: JP-PFIZER INC-PV202400153824

PATIENT
  Age: 57 Year
  Sex: Female
  Weight: 47.6 kg

DRUGS (10)
  1. ELREXFIO [Suspect]
     Active Substance: ELRANATAMAB-BCMM
     Indication: Plasma cell myeloma
     Route: 058
  2. ELREXFIO [Suspect]
     Active Substance: ELRANATAMAB-BCMM
     Route: 058
  3. ELREXFIO [Suspect]
     Active Substance: ELRANATAMAB-BCMM
     Route: 058
  4. GANCICLOVIR [Suspect]
     Active Substance: GANCICLOVIR
     Dosage: 120 MG, 2X/DAY
     Dates: start: 20250129
  5. VALGANCICLOVIR HYDROCHLORIDE [Suspect]
     Active Substance: VALGANCICLOVIR HYDROCHLORIDE
     Dosage: 450 MG, 2X/DAY
     Dates: start: 20250127
  6. VALGANCICLOVIR [Suspect]
     Active Substance: VALGANCICLOVIR
  7. BILANOA OD [Concomitant]
     Indication: Dermatitis
     Dosage: 20 MG, 1X/DAY (BEFORE BED)
  8. ACYCLOVIR [Concomitant]
     Active Substance: ACYCLOVIR
     Indication: Infection prophylaxis
  9. FAMOTIDINE [Concomitant]
     Active Substance: FAMOTIDINE
     Indication: Gastritis
     Dosage: 10 MG, 1X/DAY (MORNING)
  10. FUNGIZONE [Concomitant]
     Active Substance: AMPHOTERICIN B
     Indication: Infection
     Dosage: 1 ML, 3X/DAY (AFTER MEAL)

REACTIONS (5)
  - Meningitis viral [Fatal]
  - Cytomegalovirus infection [Fatal]
  - Cytokine release syndrome [Fatal]
  - Herpes zoster oticus [Not Recovered/Not Resolved]
  - Herpes zoster [Recovering/Resolving]

NARRATIVE: CASE EVENT DATE: 20211108
